FAERS Safety Report 14529824 (Version 1)
Quarter: 2018Q1

REPORT INFORMATION
  Report Type: Spontaneous
  Country: RU (occurrence: RU)
  Receive Date: 20180214
  Receipt Date: 20180214
  Transmission Date: 20180509
  Serious: Yes (Other)
  Sender: FDA-Public Use
  Company Number: RU-ASTRAZENECA-2018SE13806

PATIENT
  Age: 19964 Day
  Sex: Male
  Weight: 83 kg

DRUGS (4)
  1. METFORMIN [Concomitant]
     Active Substance: METFORMIN HYDROCHLORIDE
  2. FORXIGA [Suspect]
     Active Substance: DAPAGLIFLOZIN
     Indication: TYPE 2 DIABETES MELLITUS
     Route: 048
     Dates: start: 20161111, end: 20161225
  3. LANTUS [Concomitant]
     Active Substance: INSULIN GLARGINE
     Dosage: 16ED
     Route: 058
  4. DIABETON MB [Concomitant]
     Active Substance: GLICLAZIDE
     Route: 048
     Dates: start: 20100420, end: 20161116

REACTIONS (1)
  - Ketoacidosis [Recovered/Resolved]

NARRATIVE: CASE EVENT DATE: 20161111
